FAERS Safety Report 8009542-3 (Version None)
Quarter: 2011Q4

REPORT INFORMATION
  Report Type: 
  Country: None (occurrence: None)
  Receive Date: 20111227
  Receipt Date: 20111219
  Transmission Date: 20120403
  Serious: Yes (Other)
  Sender: FDA-Public Use
  Company Number: US-ASTRAZENECA-2010SE49486

PATIENT
  Age: 62 Year
  Sex: Female
  Weight: 64.9 kg

DRUGS (11)
  1. ASPIRIN [Concomitant]
  2. POTASSIUM [Concomitant]
  3. ACETAMINOPHEN [Concomitant]
  4. LOSARTAN POTASSIUM [Concomitant]
  5. NEXIUM [Suspect]
     Indication: GASTROOESOPHAGEAL REFLUX DISEASE
     Route: 048
     Dates: start: 19990101
  6. SYMBICORT [Suspect]
     Indication: BRONCHITIS
     Dosage: 160 BID
     Route: 055
     Dates: start: 20080101
  7. VITAMIN D [Concomitant]
  8. FLONASE [Concomitant]
  9. FISH OIL [Concomitant]
  10. DILTIAZEM HCL [Concomitant]
  11. LASIX [Concomitant]

REACTIONS (10)
  - BLOOD CHOLESTEROL INCREASED [None]
  - CORONARY ARTERY DISEASE [None]
  - ARTHRITIS [None]
  - PAIN IN EXTREMITY [None]
  - ASTHMA [None]
  - BRONCHITIS CHRONIC [None]
  - CHEST PAIN [None]
  - MUSCULOSKELETAL PAIN [None]
  - HYPERTENSION [None]
  - EMPHYSEMA [None]
